FAERS Safety Report 7231538-X (Version None)
Quarter: 2011Q1

REPORT INFORMATION
  Report Type: 
  Country: None (occurrence: None)
  Receive Date: 20110107
  Receipt Date: 20100113
  Transmission Date: 20110831
  Serious: Yes (Other)
  Sender: FDA-Public Use
  Company Number: AMI0017249

PATIENT
  Age: 89 Year
  Sex: Female

DRUGS (1)
  1. TIMOLOL MALEATE [Suspect]
     Indication: GLAUCOMA
     Dosage: 2 DROPS Q.D. 046
     Dates: end: 20091216

REACTIONS (1)
  - ATRIOVENTRICULAR BLOCK COMPLETE [None]
